FAERS Safety Report 13735483 (Version 6)
Quarter: 2018Q2

REPORT INFORMATION
  Report Type: Spontaneous
  Country: US (occurrence: US)
  Receive Date: 20170710
  Receipt Date: 20180420
  Transmission Date: 20180711
  Serious: Yes (Hospitalization)
  Sender: FDA-Public Use
  Company Number: US-PFIZER INC-2017296356

PATIENT
  Age: 81 Year
  Sex: Female
  Weight: 72.56 kg

DRUGS (4)
  1. IBRANCE [Suspect]
     Active Substance: PALBOCICLIB
     Indication: BREAST CANCER METASTATIC
     Dosage: 125 MG, UNK
  2. IBRANCE [Suspect]
     Active Substance: PALBOCICLIB
     Dosage: 100 MG, CYCLIC (21 DAYS AND THEN 7 DAYS OFF)
  3. LETROZOLE. [Concomitant]
     Active Substance: LETROZOLE
     Indication: BREAST CANCER METASTATIC
     Dosage: UNK
     Dates: start: 201704
  4. IBRANCE [Suspect]
     Active Substance: PALBOCICLIB
     Dosage: 100 MG, CYCLIC (21 DAYS AND THEN 7 DAYS OFF)
     Route: 048
     Dates: start: 20170424

REACTIONS (14)
  - Dry mouth [Recovered/Resolved]
  - Oral pain [Recovered/Resolved]
  - Oral discomfort [Recovered/Resolved]
  - Stomatitis [Not Recovered/Not Resolved]
  - Lip dry [Recovered/Resolved]
  - Cheilitis [Unknown]
  - Pruritus [Recovered/Resolved]
  - Alopecia [Unknown]
  - Chapped lips [Recovered/Resolved]
  - Fatigue [Unknown]
  - Cough [Not Recovered/Not Resolved]
  - Condition aggravated [Not Recovered/Not Resolved]
  - Oral herpes [Unknown]
  - Rosacea [Not Recovered/Not Resolved]

NARRATIVE: CASE EVENT DATE: 20170715
